FAERS Safety Report 22045501 (Version 3)
Quarter: 2023Q1

REPORT INFORMATION
  Report Type: Spontaneous
  Country: GB (occurrence: GB)
  Receive Date: 20230228
  Receipt Date: 20230317
  Transmission Date: 20230418
  Serious: Yes (Hospitalization, Other)
  Sender: FDA-Public Use
  Company Number: GB-MYLANLABS-2023M1021587

PATIENT
  Sex: Female

DRUGS (1)
  1. CLOZARIL [Suspect]
     Active Substance: CLOZAPINE
     Indication: Schizophrenia
     Dosage: 250 MILLIGRAM, QD (100 MG MANE, 150 MG NOCTE), MAINTENANCE DOSE
     Route: 048
     Dates: start: 20080429, end: 20230310

REACTIONS (4)
  - Mental disorder [Recovering/Resolving]
  - Electrocardiogram QT prolonged [Unknown]
  - Sedation [Unknown]
  - Rash [Unknown]
